FAERS Safety Report 22933157 (Version 5)
Quarter: 2024Q4

REPORT INFORMATION
  Report Type: Report from Study
  Country: CA (occurrence: CA)
  Receive Date: 20230912
  Receipt Date: 20241121
  Transmission Date: 20250115
  Serious: No
  Sender: ROCHE
  Company Number: CA-ROCHE-3420677

PATIENT
  Age: 36 Year
  Sex: Female

DRUGS (1)
  1. OCREVUS [Suspect]
     Active Substance: OCRELIZUMAB
     Indication: Relapsing-remitting multiple sclerosis
     Dosage: THEN 600 MG EVERY 6 MONTH
     Route: 042
     Dates: start: 20210428

REACTIONS (1)
  - Herpes virus infection [Recovered/Resolved]

NARRATIVE: CASE EVENT DATE: 20230908
